FAERS Safety Report 6271733-X (Version None)
Quarter: 2009Q3

REPORT INFORMATION
  Report Type: 
  Country: None (occurrence: None)
  Receive Date: 20090717
  Receipt Date: 20090716
  Transmission Date: 20100115
  Serious: Yes (Other)
  Sender: FDA-Public Use
  Company Number: NZ-NAPPMUNDI-USA-2009-0039097

PATIENT
  Sex: Female

DRUGS (5)
  1. OXYCODONE HYDROCHLORIDE [Suspect]
     Indication: PAIN
     Dosage: 40 MG, DAILY
     Route: 048
  2. TRAMADOL HCL [Suspect]
     Indication: PAIN
     Dosage: 400 MG, UNK
     Route: 048
     Dates: start: 20090215, end: 20090224
  3. ONDANSETRON [Suspect]
     Indication: VOMITING
  4. FENTANYL-100 [Suspect]
     Indication: PAIN
  5. HALOPERIDOL [Concomitant]

REACTIONS (1)
  - SEROTONIN SYNDROME [None]
